FAERS Safety Report 9476116 (Version 2)
Quarter: 2013Q3

REPORT INFORMATION
  Report Type: Spontaneous
  Country: VE (occurrence: VE)
  Receive Date: 20130826
  Receipt Date: 20130830
  Transmission Date: 20140515
  Serious: No
  Sender: FDA-Public Use
  Company Number: PHHY2013VE091720

PATIENT
  Age: 63 Year
  Sex: Male

DRUGS (4)
  1. FORADIL INHAL. CAPS. [Suspect]
     Indication: OBSTRUCTIVE AIRWAYS DISORDER
     Dosage: DAILY
  2. MIFLONIDE [Suspect]
     Indication: OBSTRUCTIVE AIRWAYS DISORDER
     Dosage: DAILY
  3. OMEPRAZOLE [Concomitant]
     Dosage: 20 MG, DAILY
  4. FLUCONAZOLE [Concomitant]
     Dosage: 150 MG, BIW

REACTIONS (2)
  - Wrong technique in drug usage process [Unknown]
  - Device malfunction [Unknown]
